FAERS Safety Report 4425204-3 (Version None)
Quarter: 2004Q3

REPORT INFORMATION
  Report Type: 
  Country: None (occurrence: None)
  Receive Date: 20040809
  Receipt Date: 20040727
  Transmission Date: 20050211
  Serious: Yes (Death, Hospitalization)
  Sender: FDA-Public Use
  Company Number: 430014M04USA

PATIENT
  Age: 43 Year
  Sex: Male
  Weight: 175 kg

DRUGS (2)
  1. NOVANTRONE [Suspect]
     Indication: MULTIPLE SCLEROSIS
     Dosage: 1 IN 3 MONTHS, INTRAVENOUS
     Route: 042
  2. BETASERON [Concomitant]

REACTIONS (1)
  - ACUTE MYELOID LEUKAEMIA [None]
